FAERS Safety Report 15386509 (Version 3)
Quarter: 2019Q1

REPORT INFORMATION
  Report Type: Report from Study
  Country: US (occurrence: US)
  Receive Date: 20180914
  Receipt Date: 20190114
  Transmission Date: 20190417
  Serious: Yes (Other)
  Sender: FDA-Public Use
  Company Number: US-JAZZ-2018-US-006592

PATIENT
  Age: 26 Year
  Sex: Male

DRUGS (15)
  1. HUMIRA [Concomitant]
     Active Substance: ADALIMUMAB
  2. ADDERALL [Concomitant]
     Active Substance: AMPHETAMINE ASPARTATE\AMPHETAMINE SULFATE\DEXTROAMPHETAMINE SACCHARATE\DEXTROAMPHETAMINE SULFATE
  3. CELEBREX [Suspect]
     Active Substance: CELECOXIB
     Indication: PAIN
  4. NAPROXEN. [Concomitant]
     Active Substance: NAPROXEN
  5. XYREM [Suspect]
     Active Substance: SODIUM OXYBATE
     Dosage: 3.5 G, BID
     Route: 048
     Dates: start: 201711
  6. FLUVOXAMINE [Concomitant]
     Active Substance: FLUVOXAMINE
  7. MELOXICAM. [Concomitant]
     Active Substance: MELOXICAM
  8. QNASL [Concomitant]
     Active Substance: BECLOMETHASONE DIPROPIONATE
  9. XANAX [Concomitant]
     Active Substance: ALPRAZOLAM
  10. XYREM [Suspect]
     Active Substance: SODIUM OXYBATE
     Dosage: 3 G, BID
     Route: 048
     Dates: start: 201709, end: 201711
  11. MELATONIN [Concomitant]
     Active Substance: MELATONIN
  12. DIPHENHYDRAMINE HYDROCHLORIDE. [Concomitant]
     Active Substance: DIPHENHYDRAMINE HYDROCHLORIDE
  13. XYREM [Suspect]
     Active Substance: SODIUM OXYBATE
     Indication: NARCOLEPSY
     Dosage: 2.25 G, BID
     Route: 048
     Dates: start: 201707, end: 201709
  14. CLARITIN-D NOS [Concomitant]
     Active Substance: LORATADINE\PSEUDOEPHEDRINE SULFATE
  15. RESTASIS [Concomitant]
     Active Substance: CYCLOSPORINE

REACTIONS (3)
  - Ankylosing spondylitis [Not Recovered/Not Resolved]
  - Renal impairment [Recovered/Resolved]
  - Condition aggravated [Not Recovered/Not Resolved]

NARRATIVE: CASE EVENT DATE: 201808
